FAERS Safety Report 5542084-3 (Version None)
Quarter: 2007Q4

REPORT INFORMATION
  Report Type: 
  Country: None (occurrence: None)
  Receive Date: 20071210
  Receipt Date: 20061130
  Transmission Date: 20080405
  Serious: No
  Sender: FDA-Public Use
  Company Number: US-AMGEN-US197016

PATIENT
  Sex: Female

DRUGS (9)
  1. ENBREL [Suspect]
     Indication: RHEUMATOID ARTHRITIS
     Route: 058
     Dates: start: 20021212
  2. COUMADIN [Concomitant]
     Route: 065
  3. RANITIDINE HCL [Concomitant]
     Route: 065
  4. LASIX [Concomitant]
     Route: 065
  5. GLUCOTROL [Concomitant]
     Route: 065
  6. CATAPRES [Concomitant]
     Route: 065
  7. SYNTHROID [Concomitant]
     Route: 065
  8. VASOTEC [Concomitant]
     Route: 065
  9. CARDIZEM CD [Concomitant]
     Route: 065

REACTIONS (1)
  - INJECTION SITE HAEMORRHAGE [None]
